FAERS Safety Report 10786472 (Version 1)
Quarter: 2015Q1

REPORT INFORMATION
  Report Type: Spontaneous
  Country: US (occurrence: None)
  Receive Date: 20150210
  Receipt Date: 20150210
  Transmission Date: 20150721
  Serious: Yes (Life-Threatening, Hospitalization, Disabling, Other)
  Sender: FDA-Public Use
  Company Number: None

PATIENT
  Age: 78 Year
  Sex: Male
  Weight: 102.06 kg

DRUGS (2)
  1. HALDOL [Suspect]
     Active Substance: HALOPERIDOL
     Indication: AGITATION
     Dates: start: 20150208, end: 20150209
  2. HALDOL [Suspect]
     Active Substance: HALOPERIDOL
     Dates: start: 20150208, end: 20150209

REACTIONS (7)
  - Tremor [None]
  - Swollen tongue [None]
  - Pyrexia [None]
  - Respiratory rate increased [None]
  - Heart rate increased [None]
  - Contraindicated drug administered [None]
  - Heart rate irregular [None]

NARRATIVE: CASE EVENT DATE: 20150209
